FAERS Safety Report 8291234-7 (Version None)
Quarter: 2012Q2

REPORT INFORMATION
  Report Type: 
  Country: None (occurrence: None)
  Receive Date: 20120417
  Receipt Date: 20120414
  Transmission Date: 20120825
  Serious: Yes (Other)
  Sender: FDA-Public Use
  Company Number: US-BRISTOL-MYERS SQUIBB COMPANY-16522724

PATIENT
  Age: 56 Year
  Sex: Female
  Weight: 50 kg

DRUGS (6)
  1. ZOFRAN [Concomitant]
  2. XANAX [Concomitant]
  3. PERCOCET [Concomitant]
  4. ORENCIA [Suspect]
     Indication: RHEUMATOID ARTHRITIS
     Dosage: RECENT DOSE 500MG LAST INFUSION WAS ON 11APR2012
     Route: 042
  5. VALIUM [Concomitant]
  6. SOMA [Concomitant]

REACTIONS (5)
  - STRESS [None]
  - FATIGUE [None]
  - HEADACHE [None]
  - NAUSEA [None]
  - FOOT DEFORMITY [None]
